FAERS Safety Report 6742613-8 (Version None)
Quarter: 2010Q2

REPORT INFORMATION
  Report Type: 
  Country: None (occurrence: None)
  Receive Date: 20100524
  Receipt Date: 20100406
  Transmission Date: 20101027
  Serious: No
  Sender: FDA-Public Use
  Company Number: ACO_00677_2010

PATIENT
  Sex: Female
  Weight: 65.7716 kg

DRUGS (7)
  1. AMPYRA [Suspect]
     Indication: MULTIPLE SCLEROSIS
     Dosage: (10 MG BID OTHER)
     Dates: start: 20100406
  2. ADDERALL 30 [Concomitant]
  3. PROZAC [Concomitant]
  4. BACLOFEN [Concomitant]
  5. NEURONTIN [Concomitant]
  6. KLONOPIN [Concomitant]
  7. REBIF [Concomitant]

REACTIONS (1)
  - SEDATION [None]
